FAERS Safety Report 10213664 (Version 1)
Quarter: 2014Q2

REPORT INFORMATION
  Report Type: Spontaneous
  Country: US (occurrence: US)
  Receive Date: 20140603
  Receipt Date: 20140603
  Transmission Date: 20141212
  Serious: No
  Sender: FDA-Public Use
  Company Number: US-B.I. PHARMACEUTICALS,INC./RIDGEFIELD-2014-BI-22897BP

PATIENT
  Sex: Male
  Weight: 79 kg

DRUGS (3)
  1. SPIRIVA [Suspect]
     Indication: CHRONIC OBSTRUCTIVE PULMONARY DISEASE
     Dosage: 18 MCG
     Route: 055
     Dates: start: 2013
  2. ARMOUR THYROID [Concomitant]
     Indication: HYPOTHYROIDISM
     Dosage: 60 MG
     Route: 048
  3. OXYCODONE [Concomitant]
     Indication: PAIN
     Route: 048

REACTIONS (1)
  - Productive cough [Not Recovered/Not Resolved]
